FAERS Safety Report 6749466-2 (Version None)
Quarter: 2010Q2

REPORT INFORMATION
  Report Type: 
  Country: None (occurrence: None)
  Receive Date: 20100526
  Receipt Date: 20100519
  Transmission Date: 20101027
  Serious: Yes (Hospitalization, Other)
  Sender: FDA-Public Use
  Company Number: 010480

PATIENT
  Sex: Female
  Weight: 65 kg

DRUGS (1)
  1. KEPPRA [Suspect]
     Indication: PARTIAL SEIZURES
     Dosage: (1000 MG BID ORAL)
     Route: 048
     Dates: start: 20091101

REACTIONS (2)
  - CONDITION AGGRAVATED [None]
  - RENAL CELL CARCINOMA [None]
